FAERS Safety Report 4324592-6 (Version None)
Quarter: 2004Q1

REPORT INFORMATION
  Report Type: 
  Country: None (occurrence: None)
  Receive Date: 20040325
  Receipt Date: 20040325
  Transmission Date: 20041129
  Serious: No
  Sender: FDA-Public Use
  Company Number: None

PATIENT
  Age: 59 Year
  Sex: Male

DRUGS (2)
  1. RITUXIMAB [Suspect]
     Dosage: 375MG/M2 TIW IV
     Route: 042
     Dates: start: 20030401, end: 20030501
  2. ALLOPURINOL [Concomitant]

REACTIONS (1)
  - ARTHRITIS [None]
